FAERS Safety Report 5868322-5 (Version None)
Quarter: 2008Q3

REPORT INFORMATION
  Report Type: 
  Country: None (occurrence: None)
  Receive Date: 20080902
  Receipt Date: 20080902
  Transmission Date: 20090109
  Serious: Yes (Disabling)
  Sender: FDA-Public Use
  Company Number: None

PATIENT
  Sex: Female

DRUGS (4)
  1. VYTORIN [Suspect]
     Indication: HYPERLIPIDAEMIA
     Dosage: 10MG/40MG QD PO
     Route: 048
     Dates: start: 20050107, end: 20080830
  2. SIMVASTATIN [Suspect]
     Indication: HYPERLIPIDAEMIA
     Dosage: 40MG QD PO
     Route: 048
     Dates: start: 20030612, end: 20041210
  3. NAMENDA [Concomitant]
  4. CARVEDILOL [Concomitant]

REACTIONS (1)
  - COLON CANCER [None]
